FAERS Safety Report 15369499 (Version 3)
Quarter: 2019Q2

REPORT INFORMATION
  Report Type: Spontaneous
  Country: US (occurrence: US)
  Receive Date: 20180911
  Receipt Date: 20190408
  Transmission Date: 20190711
  Serious: No
  Sender: FDA-Public Use
  Company Number: US-PFIZER INC-2017443441

PATIENT
  Age: 70 Year
  Sex: Male

DRUGS (4)
  1. LYRICA [Suspect]
     Active Substance: PREGABALIN
     Indication: LEG AMPUTATION
     Dosage: 150 MG, 4X/DAY
     Route: 048
     Dates: start: 20190212
  2. LYRICA [Suspect]
     Active Substance: PREGABALIN
     Indication: NEUROPATHY PERIPHERAL
     Dosage: 150 MG, 3X/DAY
     Route: 048
     Dates: start: 20171006
  3. LYRICA [Suspect]
     Active Substance: PREGABALIN
     Indication: HEPATOCELLULAR CARCINOMA
  4. LYRICA [Suspect]
     Active Substance: PREGABALIN
     Indication: DIABETIC NEUROPATHY
     Dosage: 150 MG, 4X/DAY

REACTIONS (3)
  - Product use issue [Unknown]
  - Overdose [Unknown]
  - Fatigue [Unknown]
